FAERS Safety Report 11666183 (Version 1)
Quarter: 2015Q4

REPORT INFORMATION
  Report Type: Other
  Country: FR (occurrence: FR)
  Receive Date: 20151027
  Receipt Date: 20151027
  Transmission Date: 20160304
  Serious: Yes (Hospitalization)
  Sender: FDA-Public Use
  Company Number: FR-SYMPLMED PHARMACEUTICALS-2015SYMPLMED000051

PATIENT

DRUGS (12)
  1. GLICLAZIDE [Suspect]
     Active Substance: GLICLAZIDE
     Indication: PRODUCT USED FOR UNKNOWN INDICATION
     Dosage: 2250 MG, SINGLE
     Route: 048
     Dates: start: 20150916, end: 20150916
  2. ATARAX [Suspect]
     Active Substance: HYDROXYZINE\HYDROXYZINE HYDROCHLORIDE
     Indication: PRODUCT USED FOR UNKNOWN INDICATION
     Dosage: UNK
     Route: 048
  3. OMEPRAZOLE MAGNESIUM. [Suspect]
     Active Substance: OMEPRAZOLE MAGNESIUM
     Indication: PRODUCT USED FOR UNKNOWN INDICATION
     Dosage: UNK
     Route: 048
  4. COVERAM [Suspect]
     Active Substance: AMLODIPINE\PERINDOPRIL
     Dosage: 120 (10MG/5MG) TABLETS, SINGLE
     Route: 048
     Dates: start: 20150916, end: 20150916
  5. METFORMIN HYDROCHLORIDE. [Suspect]
     Active Substance: METFORMIN HYDROCHLORIDE
     Indication: PRODUCT USED FOR UNKNOWN INDICATION
     Dosage: 20000 MG, SINGLE
     Route: 048
     Dates: start: 20150916, end: 20150916
  6. LAMICTAL [Concomitant]
     Active Substance: LAMOTRIGINE
     Indication: PRODUCT USED FOR UNKNOWN INDICATION
     Dosage: UNK
  7. ATARAX [Suspect]
     Active Substance: HYDROXYZINE\HYDROXYZINE HYDROCHLORIDE
     Dosage: 5 DF, SINGLE
     Route: 048
     Dates: start: 20150916, end: 20150916
  8. COVERAM [Suspect]
     Active Substance: AMLODIPINE\PERINDOPRIL
     Indication: PRODUCT USED FOR UNKNOWN INDICATION
     Dosage: 10MG/ 5MG TABLET, UNK
     Route: 048
  9. LOXAPAC                            /00401802/ [Suspect]
     Active Substance: LOXAPINE SUCCINATE
     Indication: PRODUCT USED FOR UNKNOWN INDICATION
     Dosage: 32 DF, SINGLE
     Route: 048
     Dates: start: 20150916, end: 20150916
  10. OMEPRAZOLE MAGNESIUM. [Suspect]
     Active Substance: OMEPRAZOLE MAGNESIUM
     Dosage: 280 MG, SINGLE
     Route: 048
     Dates: start: 20150916, end: 20150916
  11. VALIUM [Suspect]
     Active Substance: DIAZEPAM
     Indication: PRODUCT USED FOR UNKNOWN INDICATION
     Dosage: 400 MG, SINGLE
     Route: 048
     Dates: start: 20150916, end: 20150916
  12. THERALENE [Suspect]
     Active Substance: TRIMEPRAZINE
     Indication: PRODUCT USED FOR UNKNOWN INDICATION
     Dosage: 17 DF, SINGLE
     Route: 065
     Dates: start: 20150916, end: 20150916

REACTIONS (11)
  - Intentional overdose [Unknown]
  - Hypotension [Recovered/Resolved]
  - Abdominal pain lower [Unknown]
  - Suicide attempt [Unknown]
  - Altered state of consciousness [Recovered/Resolved]
  - Hypertonia [Unknown]
  - Oesophageal oedema [Recovering/Resolving]
  - Vomiting [Unknown]
  - Electrocardiogram QT prolonged [Unknown]
  - Hypoglycaemia [Recovered/Resolved]
  - Gastrointestinal oedema [Recovering/Resolving]

NARRATIVE: CASE EVENT DATE: 20150916
